FAERS Safety Report 7517681-6 (Version None)
Quarter: 2011Q2

REPORT INFORMATION
  Report Type: 
  Country: None (occurrence: None)
  Receive Date: 20110602
  Receipt Date: 20110523
  Transmission Date: 20111010
  Serious: Yes (Hospitalization)
  Sender: FDA-Public Use
  Company Number: US-BIOGENIDEC-2011BI007095

PATIENT
  Age: 47 Year
  Sex: Female

DRUGS (2)
  1. AVONEX [Suspect]
     Indication: MULTIPLE SCLEROSIS
     Route: 030
     Dates: start: 20050305, end: 20090401
  2. AVONEX [Suspect]
     Route: 030
     Dates: start: 20090705

REACTIONS (8)
  - MUSCLE SPASMS [None]
  - OVARIAN DISORDER [None]
  - HYPERTENSION [None]
  - MENSTRUATION IRREGULAR [None]
  - OVARIAN NEOPLASM [None]
  - ANAEMIA [None]
  - MENORRHAGIA [None]
  - ASTHENIA [None]
